FAERS Safety Report 4724287-0 (Version None)
Quarter: 2005Q3

REPORT INFORMATION
  Report Type: 
  Country: None (occurrence: None)
  Receive Date: 20050722
  Receipt Date: 20050712
  Transmission Date: 20060218
  Serious: Yes (Hospitalization)
  Sender: FDA-Public Use
  Company Number: 2005100335

PATIENT
  Age: 69 Year
  Sex: Female

DRUGS (18)
  1. SOLU-MEDROL [Suspect]
     Indication: RHEUMATOID ARTHRITIS
     Dosage: 250 MG (250 MG, 1 IN 1 D)
     Dates: start: 20050412, end: 20050414
  2. MOBIC [Suspect]
     Indication: RHEUMATOID ARTHRITIS
     Dosage: 7.5 MG (7.5 MG, 1 IN 1 D), ORAL
     Route: 048
     Dates: start: 20050308, end: 20050416
  3. B-KOMBIN FORTE (CALCIUM PANTOTHENATE, NICOTINAMIDE, PYRIDOXINE  HYDROC [Concomitant]
  4. METHOTREXATE [Concomitant]
  5. CALCICHEW (CALIUM CARBONATE) [Concomitant]
  6. ETANERCEPT 9ETANERCEPT) [Concomitant]
  7. OPTINATE SEPTIMUM (RISEDRONATE SODIUM) [Concomitant]
  8. VAGIFEM [Concomitant]
  9. NITROMEX (GLYCERYL TRINITRATE) [Concomitant]
  10. ACETAMINOPHEN [Concomitant]
  11. GAVISCON [Concomitant]
  12. TIMPILO (PILOCARPINE HYDROCHLORIDE, TIMOLOL MALEATE) [Concomitant]
  13. ASPIRIN [Concomitant]
  14. ORUDIS [Concomitant]
  15. LIPITOR [Concomitant]
  16. LOSEC MUPS (OMEPRAZOLE MAGNESIUM) [Concomitant]
  17. XERODENT (MALIC ACID, SODIUM FLUORIDE, ZYLITOL) [Concomitant]
  18. TRAMADOL HCL [Concomitant]

REACTIONS (4)
  - DIVERTICULAR PERFORATION [None]
  - ENTEROCOCCAL INFECTION [None]
  - POST PROCEDURAL COMPLICATION [None]
  - WOUND INFECTION PSEUDOMONAS [None]
